FAERS Safety Report 17337310 (Version 1)
Quarter: 2020Q1

REPORT INFORMATION
  Report Type: Spontaneous
  Country: US (occurrence: US)
  Receive Date: 20200129
  Receipt Date: 20200129
  Transmission Date: 20200409
  Serious: Yes (Hospitalization, Other)
  Sender: FDA-Public Use
  Company Number: US-ALVOGEN-2020-ALVOGEN-102434

PATIENT
  Age: 78 Year
  Sex: Female

DRUGS (1)
  1. FLECAINIDE [Suspect]
     Active Substance: FLECAINIDE
     Indication: ATRIAL FIBRILLATION
     Dosage: 50 MG TWICE DAILY

REACTIONS (5)
  - Toxicity to various agents [Recovering/Resolving]
  - Bradycardia [Unknown]
  - Hyponatraemia [Recovering/Resolving]
  - Atrioventricular block first degree [Recovering/Resolving]
  - Device malfunction [Recovering/Resolving]
